FAERS Safety Report 11725269 (Version 2)
Quarter: 2016Q1

REPORT INFORMATION
  Report Type: Report from Study
  Country: US (occurrence: US)
  Receive Date: 20151111
  Receipt Date: 20160203
  Transmission Date: 20160525
  Serious: No
  Sender: FDA-Public Use
  Company Number: US-UCBSA-2015016541

PATIENT
  Sex: Female

DRUGS (2)
  1. VIMPAT [Suspect]
     Active Substance: LACOSAMIDE
     Indication: SEIZURE
     Dosage: 200 MG/ 2 DAY
     Route: 048
     Dates: start: 201503
  2. LEVETIRACETAM. [Suspect]
     Active Substance: LEVETIRACETAM
     Indication: SEIZURE
     Dosage: UNK
     Dates: start: 2012, end: 201504

REACTIONS (3)
  - Tremor [Not Recovered/Not Resolved]
  - Anger [Recovered/Resolved]
  - Seizure [Recovered/Resolved]

NARRATIVE: CASE EVENT DATE: 2012
